FAERS Safety Report 24686383 (Version 1)
Quarter: 2024Q4

REPORT INFORMATION
  Report Type: Spontaneous
  Country: US (occurrence: None)
  Receive Date: 20241128
  Receipt Date: 20241128
  Transmission Date: 20250115
  Serious: Yes (Hospitalization)
  Sender: Public
  Company Number: None

PATIENT
  Age: 33 Year
  Sex: Male
  Weight: 94.95 kg

DRUGS (3)
  1. QELBREE [Suspect]
     Active Substance: VILOXAZINE HYDROCHLORIDE
     Indication: Attention deficit hyperactivity disorder
     Dates: start: 20241011, end: 20241125
  2. WELLBUTRIN [Suspect]
     Active Substance: BUPROPION HYDROCHLORIDE
  3. LAMICTAL [Concomitant]
     Active Substance: LAMOTRIGINE

REACTIONS (10)
  - Fatigue [None]
  - Influenza like illness [None]
  - Suicidal ideation [None]
  - Impaired driving ability [None]
  - Impulsive behaviour [None]
  - Drug withdrawal syndrome [None]
  - Pain [None]
  - Nausea [None]
  - Headache [None]
  - Suicidal behaviour [None]

NARRATIVE: CASE EVENT DATE: 20241121
